FAERS Safety Report 8504759-3 (Version None)
Quarter: 2012Q3

REPORT INFORMATION
  Report Type: 
  Country: None (occurrence: None)
  Receive Date: 20120712
  Receipt Date: 20120705
  Transmission Date: 20120928
  Serious: Yes (Death, Hospitalization)
  Sender: FDA-Public Use
  Company Number: DE-BRISTOL-MYERS SQUIBB COMPANY-16481053

PATIENT
  Age: 80 Year
  Sex: Female
  Weight: 70 kg

DRUGS (7)
  1. DEXAMETHASONE [Concomitant]
     Route: 048
  2. HALOPERIDOL [Concomitant]
     Route: 048
  3. IPILIMUMAB [Suspect]
     Indication: MALIGNANT MELANOMA
     Route: 042
     Dates: start: 20120209, end: 20120301
  4. DIMENHYDRINATE [Concomitant]
     Route: 042
  5. SODIUM CHLORIDE [Concomitant]
     Dosage: 1DF= 0.9%
  6. PANTOPRAZOLE [Concomitant]
     Route: 048
  7. TORASEMIDE [Concomitant]
     Route: 048

REACTIONS (2)
  - NAUSEA [None]
  - MULTI-ORGAN FAILURE [None]
